FAERS Safety Report 24771595 (Version 1)
Quarter: 2024Q4

REPORT INFORMATION
  Report Type: Spontaneous
  Country: JP (occurrence: JP)
  Receive Date: 20241224
  Receipt Date: 20241224
  Transmission Date: 20250115
  Serious: Yes (Other)
  Sender: ALEXION PHARMACEUTICALS
  Company Number: JP-ASTRAZENECA-240104860_013020_P_1

PATIENT
  Age: 78 Year
  Weight: 54 kg

DRUGS (48)
  1. OSIMERTINIB [Suspect]
     Active Substance: OSIMERTINIB
     Indication: Non-small cell lung cancer
     Dosage: 40 MILLIGRAM, QD
  2. OSIMERTINIB [Suspect]
     Active Substance: OSIMERTINIB
     Dosage: 40 MILLIGRAM, QD
     Route: 048
  3. OSIMERTINIB [Suspect]
     Active Substance: OSIMERTINIB
     Dosage: 40 MILLIGRAM, QD
  4. OSIMERTINIB [Suspect]
     Active Substance: OSIMERTINIB
     Dosage: 40 MILLIGRAM, QD
     Route: 048
  5. OSIMERTINIB [Suspect]
     Active Substance: OSIMERTINIB
     Dosage: DOSE UNKNOWN
  6. OSIMERTINIB [Suspect]
     Active Substance: OSIMERTINIB
     Dosage: DOSE UNKNOWN
     Route: 048
  7. OSIMERTINIB [Suspect]
     Active Substance: OSIMERTINIB
     Dosage: DOSE UNKNOWN
  8. OSIMERTINIB [Suspect]
     Active Substance: OSIMERTINIB
     Dosage: DOSE UNKNOWN
     Route: 048
  9. WARFARIN [Concomitant]
     Active Substance: WARFARIN
  10. WARFARIN [Concomitant]
     Active Substance: WARFARIN
     Route: 048
  11. WARFARIN [Concomitant]
     Active Substance: WARFARIN
  12. WARFARIN [Concomitant]
     Active Substance: WARFARIN
     Route: 048
  13. WARFARIN [Concomitant]
     Active Substance: WARFARIN
     Route: 048
  14. WARFARIN [Concomitant]
     Active Substance: WARFARIN
  15. WARFARIN [Concomitant]
     Active Substance: WARFARIN
  16. WARFARIN [Concomitant]
     Active Substance: WARFARIN
     Route: 048
  17. ROSUVASTATIN CALCIUM [Concomitant]
     Active Substance: ROSUVASTATIN CALCIUM
  18. ROSUVASTATIN CALCIUM [Concomitant]
     Active Substance: ROSUVASTATIN CALCIUM
     Route: 048
  19. ROSUVASTATIN CALCIUM [Concomitant]
     Active Substance: ROSUVASTATIN CALCIUM
  20. ROSUVASTATIN CALCIUM [Concomitant]
     Active Substance: ROSUVASTATIN CALCIUM
     Route: 048
  21. LANSOPRAZOLE [Concomitant]
     Active Substance: LANSOPRAZOLE
  22. LANSOPRAZOLE [Concomitant]
     Active Substance: LANSOPRAZOLE
     Route: 048
  23. LANSOPRAZOLE [Concomitant]
     Active Substance: LANSOPRAZOLE
  24. LANSOPRAZOLE [Concomitant]
     Active Substance: LANSOPRAZOLE
     Route: 048
  25. BISOPROLOL FUMARATE [Concomitant]
     Active Substance: BISOPROLOL FUMARATE
  26. BISOPROLOL FUMARATE [Concomitant]
     Active Substance: BISOPROLOL FUMARATE
     Route: 048
  27. BISOPROLOL FUMARATE [Concomitant]
     Active Substance: BISOPROLOL FUMARATE
  28. BISOPROLOL FUMARATE [Concomitant]
     Active Substance: BISOPROLOL FUMARATE
     Route: 048
  29. TENELIGLIPTIN HYDROBROMIDE HYDRATE [Concomitant]
     Active Substance: TENELIGLIPTIN HYDROBROMIDE HYDRATE
  30. TENELIGLIPTIN HYDROBROMIDE HYDRATE [Concomitant]
     Active Substance: TENELIGLIPTIN HYDROBROMIDE HYDRATE
     Route: 048
  31. TENELIGLIPTIN HYDROBROMIDE HYDRATE [Concomitant]
     Active Substance: TENELIGLIPTIN HYDROBROMIDE HYDRATE
  32. TENELIGLIPTIN HYDROBROMIDE HYDRATE [Concomitant]
     Active Substance: TENELIGLIPTIN HYDROBROMIDE HYDRATE
     Route: 048
  33. ENALAPRIL MALEATE [Concomitant]
     Active Substance: ENALAPRIL MALEATE
  34. ENALAPRIL MALEATE [Concomitant]
     Active Substance: ENALAPRIL MALEATE
     Route: 048
  35. ENALAPRIL MALEATE [Concomitant]
     Active Substance: ENALAPRIL MALEATE
  36. ENALAPRIL MALEATE [Concomitant]
     Active Substance: ENALAPRIL MALEATE
     Route: 048
  37. FUROSEMIDE [Concomitant]
     Active Substance: FUROSEMIDE
  38. FUROSEMIDE [Concomitant]
     Active Substance: FUROSEMIDE
     Route: 048
  39. FUROSEMIDE [Concomitant]
     Active Substance: FUROSEMIDE
  40. FUROSEMIDE [Concomitant]
     Active Substance: FUROSEMIDE
     Route: 048
  41. NIFEDIPINE [Concomitant]
     Active Substance: NIFEDIPINE
  42. NIFEDIPINE [Concomitant]
     Active Substance: NIFEDIPINE
     Route: 048
  43. NIFEDIPINE [Concomitant]
     Active Substance: NIFEDIPINE
  44. NIFEDIPINE [Concomitant]
     Active Substance: NIFEDIPINE
     Route: 048
  45. VEKLURY [Concomitant]
     Active Substance: REMDESIVIR
     Route: 042
  46. VEKLURY [Concomitant]
     Active Substance: REMDESIVIR
  47. CEFTRIAXONE [Concomitant]
     Active Substance: CEFTRIAXONE
     Route: 042
  48. CEFTRIAXONE [Concomitant]
     Active Substance: CEFTRIAXONE

REACTIONS (2)
  - Myelosuppression [Recovered/Resolved]
  - COVID-19 [Unknown]
